FAERS Safety Report 25114141 (Version 1)
Quarter: 2025Q1

REPORT INFORMATION
  Report Type: Spontaneous
  Country: US (occurrence: None)
  Receive Date: 20250321
  Receipt Date: 20250321
  Transmission Date: 20250409
  Serious: Yes (Other)
  Sender: FDA-CTU
  Company Number: None

PATIENT
  Age: 33 Year
  Sex: Female
  Weight: 61.23 kg

DRUGS (1)
  1. MIRENA [Suspect]
     Active Substance: LEVONORGESTREL

REACTIONS (8)
  - Shock [None]
  - Loss of consciousness [None]
  - Pain [None]
  - Uterine cervical pain [None]
  - Fungal infection [None]
  - Alopecia [None]
  - Hair growth abnormal [None]
  - Uterine disorder [None]

NARRATIVE: CASE EVENT DATE: 20210121
